FAERS Safety Report 6507614-3 (Version None)
Quarter: 2009Q4

REPORT INFORMATION
  Report Type: 
  Country: None (occurrence: None)
  Receive Date: 20091221
  Receipt Date: 20090630
  Transmission Date: 20100525
  Serious: No
  Sender: FDA-Public Use
  Company Number: US-BRISTOL-MYERS SQUIBB COMPANY-14684468

PATIENT
  Sex: Female

DRUGS (4)
  1. PRAVACHOL [Suspect]
  2. AMBIEN [Suspect]
  3. XANAX [Suspect]
  4. SYMBICORT [Suspect]

REACTIONS (1)
  - SWELLING [None]
